FAERS Safety Report 23502415 (Version 1)
Quarter: 2024Q1

REPORT INFORMATION
  Report Type: Spontaneous
  Country: US (occurrence: US)
  Receive Date: 20240208
  Receipt Date: 20240208
  Transmission Date: 20240410
  Serious: No
  Sender: FDA-Public Use
  Company Number: US-INTRA-CELLULAR THERAPIES, INC.-2023ICT00175

PATIENT
  Sex: Female
  Weight: 77.098 kg

DRUGS (6)
  1. CAPLYTA [Suspect]
     Active Substance: LUMATEPERONE
     Dosage: 1 PILL (42 MG), 1X/DAY
     Route: 048
     Dates: start: 20221122
  2. ZYPREXA [Suspect]
     Active Substance: OLANZAPINE
     Dosage: UNK
  3. ATIVAN [Concomitant]
     Active Substance: LORAZEPAM
  4. TOPAMAX [Concomitant]
     Active Substance: TOPIRAMATE
  5. VITAMINS NOS [Concomitant]
     Active Substance: VITAMINS
  6. VITAMIN B [Concomitant]
     Active Substance: VITAMIN B

REACTIONS (4)
  - Acne [Recovering/Resolving]
  - Lethargy [Recovering/Resolving]
  - Fatigue [Recovering/Resolving]
  - Mania [Unknown]
